FAERS Safety Report 7664110-8 (Version None)
Quarter: 2011Q3

REPORT INFORMATION
  Report Type: 
  Country: None (occurrence: None)
  Receive Date: 20110806
  Receipt Date: 20110111
  Transmission Date: 20111222
  Serious: No
  Sender: FDA-Public Use
  Company Number: US-ABBOTT-11P-163-0696469-00

PATIENT
  Sex: Female
  Weight: 97.61 kg

DRUGS (4)
  1. SIMVASTATIN [Concomitant]
     Indication: PRODUCT USED FOR UNKNOWN INDICATION
  2. NIASPAN [Suspect]
     Indication: HYPERLIPIDAEMIA
     Dates: start: 20101228
  3. UNKNOWN MEDICATION [Concomitant]
     Indication: BLOOD PRESSURE ABNORMAL
  4. ANXIETY MEDICATION [Concomitant]
     Indication: ANXIETY

REACTIONS (2)
  - FLUSHING [None]
  - SKIN BURNING SENSATION [None]
